FAERS Safety Report 9449122 (Version 1)
Quarter: 2013Q3

REPORT INFORMATION
  Report Type: Spontaneous
  Country: JP (occurrence: JP)
  Receive Date: 20130808
  Receipt Date: 20130808
  Transmission Date: 20140515
  Serious: Yes (Death, Other)
  Sender: FDA-Public Use
  Company Number: JP-BAXTER-2013BAX031160

PATIENT
  Age: 58 Year
  Sex: Female

DRUGS (9)
  1. ENDOXAN 1G [Suspect]
     Indication: BREAST CANCER
     Dosage: 6 COURSES
     Dates: start: 200211
  2. DOXORUBICIN [Suspect]
     Indication: BREAST CANCER
     Dates: end: 200408
  3. FLUOROURACIL [Suspect]
     Indication: BREAST CANCER
     Dates: end: 200408
  4. PAMIDRONATE DISODIUM HYDRATE [Suspect]
     Indication: BREAST CANCER
     Dosage: ADMINISTERED 35 TIMES
     Dates: start: 200210, end: 200501
  5. PAMIDRONATE DISODIUM HYDRATE [Suspect]
     Dosage: ADMINISTERED 20 TIMES
     Dates: start: 200501, end: 200606
  6. ZOLEDRONIC ACID HYDRATE [Suspect]
     Indication: BREAST CANCER
     Dosage: 1 MG FOUR TIMES, ADMINISTERED 35 TIMES
     Dates: start: 200606, end: 20090325
  7. DOCETAXEL [Suspect]
     Indication: BREAST CANCER
     Dosage: 26 COURSES
     Dates: start: 200408, end: 200807
  8. PACLITAXEL [Suspect]
     Indication: BREAST CANCER
     Dosage: 30 COURSES
     Dates: start: 200810, end: 20090924
  9. VINORELBINE [Suspect]
     Indication: BREAST CANCER
     Dosage: 5 COURSES
     Dates: start: 200807, end: 200810

REACTIONS (2)
  - Osteonecrosis of jaw [Unknown]
  - Multi-organ failure [Fatal]
